FAERS Safety Report 17334701 (Version 2)
Quarter: 2020Q1

REPORT INFORMATION
  Report Type: Report from Study
  Country: FR (occurrence: FR)
  Receive Date: 20200128
  Receipt Date: 20200225
  Transmission Date: 20200409
  Serious: Yes (Other)
  Sender: FDA-Public Use
  Company Number: FR-JNJFOC-20191221993

PATIENT
  Age: 54 Year
  Sex: Female

DRUGS (6)
  1. LYRICA [Concomitant]
     Active Substance: PREGABALIN
  2. LOXAPAC                            /00401801/ [Concomitant]
     Active Substance: LOXAPINE
     Dates: start: 20191114
  3. CYMBALTA [Concomitant]
     Active Substance: DULOXETINE HYDROCHLORIDE
     Dates: start: 20191202
  4. VALIUM [Concomitant]
     Active Substance: DIAZEPAM
     Dates: start: 20191213
  5. CYMBALTA [Concomitant]
     Active Substance: DULOXETINE HYDROCHLORIDE
     Dates: start: 20191126, end: 20191201
  6. SPRAVATO [Suspect]
     Active Substance: ESKETAMINE
     Indication: DEPRESSION
     Dates: start: 20191213, end: 20200108

REACTIONS (7)
  - Sedation [Unknown]
  - Suicidal ideation [Unknown]
  - Balance disorder [Unknown]
  - Derealisation [Unknown]
  - Somnolence [Unknown]
  - Dizziness [Unknown]
  - Drug ineffective [Unknown]

NARRATIVE: CASE EVENT DATE: 20191213
